FAERS Safety Report 8509639-5 (Version None)
Quarter: 2012Q3

REPORT INFORMATION
  Report Type: 
  Country: None (occurrence: None)
  Receive Date: 20120713
  Receipt Date: 20120709
  Transmission Date: 20120928
  Serious: Yes (Other)
  Sender: FDA-Public Use
  Company Number: CHPA2012JP014882

PATIENT
  Sex: Male

DRUGS (3)
  1. NICOTINE [Suspect]
     Indication: NICOTINE DEPENDENCE
     Dosage: 52.5 MG, QD
     Route: 062
  2. NICOTINE [Suspect]
     Dosage: 17.5 MG, QD
     Route: 062
  3. DRUG THERAPY NOS [Concomitant]
     Indication: DEPRESSION
     Dosage: UNK, UNK

REACTIONS (3)
  - DEPRESSION [None]
  - SOMNOLENCE [None]
  - MALAISE [None]
